FAERS Safety Report 8013391-X (Version None)
Quarter: 2011Q4

REPORT INFORMATION
  Report Type: 
  Country: None (occurrence: None)
  Receive Date: 20111229
  Receipt Date: 20111215
  Transmission Date: 20120403
  Serious: Yes (Hospitalization)
  Sender: FDA-Public Use
  Company Number: GB-CELGENEUS-167-50794-11121994

PATIENT
  Age: 79 Year
  Sex: Male
  Weight: 100 kg

DRUGS (1)
  1. VIDAZA [Suspect]
     Dosage: 75 MICROGRAM/SQ. METER
     Route: 041
     Dates: start: 20100831, end: 20111129

REACTIONS (4)
  - DYSPNOEA [None]
  - LOWER RESPIRATORY TRACT INFECTION [None]
  - PERICARDIAL EFFUSION [None]
  - CARDIAC FAILURE [None]
